FAERS Safety Report 7811032-5 (Version None)
Quarter: 2011Q4

REPORT INFORMATION
  Report Type: 
  Country: None (occurrence: None)
  Receive Date: 20111011
  Receipt Date: 20111006
  Transmission Date: 20120403
  Serious: Yes (Hospitalization)
  Sender: FDA-Public Use
  Company Number: DKLU1073647

PATIENT
  Age: 56 Year
  Sex: Female

DRUGS (3)
  1. COSMEGEN [Suspect]
     Indication: PRODUCT USED FOR UNKNOWN INDICATION
  2. ETOPOSIDE [Suspect]
     Indication: GESTATIONAL TROPHOBLASTIC TUMOUR
     Dates: start: 20110922
  3. ETOPOSIDE [Suspect]
     Indication: GESTATIONAL TROPHOBLASTIC TUMOUR
     Dates: start: 20110923

REACTIONS (11)
  - AGITATION [None]
  - NO THERAPEUTIC RESPONSE [None]
  - RASH MACULAR [None]
  - NAUSEA [None]
  - HYPERSENSITIVITY [None]
  - ANAPHYLACTIC REACTION [None]
  - TACHYCARDIA [None]
  - CHEST DISCOMFORT [None]
  - FLUSHING [None]
  - BACK PAIN [None]
  - INFUSION RELATED REACTION [None]
